FAERS Safety Report 18903906 (Version 1)
Quarter: 2021Q1

REPORT INFORMATION
  Report Type: Spontaneous
  Country: US (occurrence: US)
  Receive Date: 20210217
  Receipt Date: 20210217
  Transmission Date: 20210420
  Serious: No
  Sender: FDA-Public Use
  Company Number: None

PATIENT
  Age: 38 Year
  Sex: Male
  Weight: 94.5 kg

DRUGS (7)
  1. AUBAGIO [Concomitant]
     Active Substance: TERIFLUNOMIDE
  2. MEN^S MULTI GUMMY [Concomitant]
  3. ONE A DAY MEN VITA CRAVES [Concomitant]
  4. RA VITAMIN D3 [Concomitant]
  5. DEXTROAMPHET SACCHARAT, AMPHET ASPARTATE, DEXTROAMPHET SULFATE AND AMPHET SULFAT [Suspect]
     Active Substance: AMPHETAMINE ASPARTATE\AMPHETAMINE SULFATE\DEXTROAMPHETAMINE SACCHARATE\DEXTROAMPHETAMINE SULFATE
     Indication: MULTIPLE SCLEROSIS
     Dosage: ?          QUANTITY:1 TABLET(S);?
     Route: 048
  6. ADDERALL [Concomitant]
     Active Substance: AMPHETAMINE ASPARTATE\AMPHETAMINE SULFATE\DEXTROAMPHETAMINE SACCHARATE\DEXTROAMPHETAMINE SULFATE
  7. XANAX [Concomitant]
     Active Substance: ALPRAZOLAM

REACTIONS (6)
  - Product substitution issue [None]
  - Hypersomnia [None]
  - Multiple sclerosis relapse [None]
  - Abdominal discomfort [None]
  - Headache [None]
  - Fatigue [None]

NARRATIVE: CASE EVENT DATE: 20210201
